FAERS Safety Report 17797622 (Version 1)
Quarter: 2020Q2

REPORT INFORMATION
  Report Type: Spontaneous
  Country: US (occurrence: US)
  Receive Date: 20200515
  Receipt Date: 20200515
  Transmission Date: 20200714
  Serious: Yes (Hospitalization)
  Sender: FDA-Public Use
  Company Number: None

PATIENT
  Age: 53 Year
  Sex: Female

DRUGS (16)
  1. PANTOPRAZOLE [Concomitant]
     Active Substance: PANTOPRAZOLE
  2. L-THYROXINE [Concomitant]
     Active Substance: LEVOTHYROXINE
  3. FEROSUL [Concomitant]
     Active Substance: FERROUS SULFATE
  4. LISINOPRIL. [Concomitant]
     Active Substance: LISINOPRIL
  5. CEPHALEXIN. [Concomitant]
     Active Substance: CEPHALEXIN
  6. DILTIAZEM. [Concomitant]
     Active Substance: DILTIAZEM
  7. PROAIR HFA [Concomitant]
     Active Substance: ALBUTEROL SULFATE
  8. ARANESP [Suspect]
     Active Substance: DARBEPOETIN ALFA
     Indication: ANAEMIA
     Route: 058
  9. CALCITRIOL. [Concomitant]
     Active Substance: CALCITRIOL
  10. NOVOLOG [Concomitant]
     Active Substance: INSULIN ASPART
  11. SEVELAMER [Concomitant]
     Active Substance: SEVELAMER
  12. ROSUVASTATIN. [Concomitant]
     Active Substance: ROSUVASTATIN
  13. ARANESP [Suspect]
     Active Substance: DARBEPOETIN ALFA
     Indication: CHRONIC KIDNEY DISEASE
     Route: 058
  14. FUROSEMIDE. [Concomitant]
     Active Substance: FUROSEMIDE
  15. VITD [Concomitant]
  16. METOPROLOL. [Concomitant]
     Active Substance: METOPROLOL

REACTIONS (1)
  - Transfusion [None]

NARRATIVE: CASE EVENT DATE: 20200514
